FAERS Safety Report 10355215 (Version 1)
Quarter: 2014Q3

REPORT INFORMATION
  Report Type: Spontaneous
  Country: US (occurrence: None)
  Receive Date: 20140729
  Receipt Date: 20140729
  Transmission Date: 20150326
  Serious: Yes (Other)
  Sender: FDA-Public Use
  Company Number: KAD201407-000801

PATIENT
  Age: 52 Year
  Sex: Female

DRUGS (3)
  1. RIBASPHERE [Suspect]
     Active Substance: RIBAVIRIN
     Indication: HEPATITIS C
     Dosage: 3-200 MG TWICE DAILY
     Route: 048
     Dates: start: 20140620
  2. SOVALDI [Suspect]
     Active Substance: SOFOSBUVIR
     Indication: HEPATITIS C
     Route: 048
     Dates: start: 20140620
  3. PEGASYS [Suspect]
     Active Substance: PEGINTERFERON ALFA-2A
     Indication: HEPATITIS C
     Dates: start: 20140620

REACTIONS (3)
  - Influenza like illness [None]
  - VIIth nerve paralysis [None]
  - Blood count abnormal [None]

NARRATIVE: CASE EVENT DATE: 20140624
